FAERS Safety Report 16195521 (Version 4)
Quarter: 2019Q3

REPORT INFORMATION
  Report Type: Spontaneous
  Country: US (occurrence: US)
  Receive Date: 20190415
  Receipt Date: 20190704
  Transmission Date: 20191004
  Serious: No
  Sender: FDA-Public Use
  Company Number: US-GW PHARMA-201902USGW0402

PATIENT

DRUGS (5)
  1. EPIDIOLEX [Suspect]
     Active Substance: CANNABIDIOL
     Indication: EPILEPSY
  2. EPIDIOLEX [Suspect]
     Active Substance: CANNABIDIOL
     Indication: EPILEPSY
  3. EPIDIOLEX [Suspect]
     Active Substance: CANNABIDIOL
     Indication: PARTIAL SEIZURES
     Dosage: 200 MILLIGRAM, BID
     Route: 048
     Dates: start: 20190201
  4. VIMPAT [Concomitant]
     Active Substance: LACOSAMIDE
     Indication: SEIZURE
     Dosage: 250 MILLIGRAM, BID
     Route: 065
  5. ONFI [Concomitant]
     Active Substance: CLOBAZAM
     Indication: SEIZURE
     Dosage: 25 MILLIGRAM, BID
     Route: 065

REACTIONS (4)
  - Weight increased [Unknown]
  - Thirst [Unknown]
  - Aggression [Unknown]
  - Increased appetite [Unknown]

NARRATIVE: CASE EVENT DATE: 20190201
